FAERS Safety Report 23449738 (Version 4)
Quarter: 2024Q1

REPORT INFORMATION
  Report Type: Spontaneous
  Country: GB (occurrence: GB)
  Receive Date: 20240129
  Receipt Date: 20240328
  Transmission Date: 20240410
  Serious: Yes (Hospitalization, Other)
  Sender: FDA-Public Use
  Company Number: GB-MLMSERVICE-20240110-4767294-1

PATIENT
  Age: 3 Decade
  Sex: Female

DRUGS (11)
  1. ONDANSETRON [Suspect]
     Active Substance: ONDANSETRON
     Indication: Local anaesthesia
     Dosage: 4 MILLIGRAM, 1 TOTAL
     Route: 042
  2. ONDANSETRON [Suspect]
     Active Substance: ONDANSETRON
     Indication: Antiemetic supportive care
  3. CARBOPROST [Suspect]
     Active Substance: CARBOPROST
     Indication: Uterine disorder
     Dosage: 250 MICROGRAM
     Route: 030
  4. FENTANYL [Suspect]
     Active Substance: FENTANYL\FENTANYL CITRATE
     Indication: Epidural anaesthesia
     Dosage: 100 MICROGRAM
     Route: 065
  5. LEVOBUPIVACAINE [Suspect]
     Active Substance: LEVOBUPIVACAINE
     Indication: Epidural anaesthesia
     Dosage: UNK (20 ML OF 0.5%)
     Route: 065
  6. LEVOBUPIVACAINE [Suspect]
     Active Substance: LEVOBUPIVACAINE
     Dosage: UNK (10 ML OF 0.5%)
     Route: 065
  7. MISOPROSTOL [Suspect]
     Active Substance: MISOPROSTOL
     Indication: Product used for unknown indication
     Dosage: 1000 MCG (PER RECTUM)
     Route: 065
  8. ERGONOVINE\OXYTOCIN [Suspect]
     Active Substance: ERGONOVINE\OXYTOCIN
     Indication: Product used for unknown indication
     Dosage: UNK (5 IU/500 MCG STAT DOSE)
     Route: 030
  9. CEFUROXIME [Concomitant]
     Active Substance: CEFUROXIME
     Indication: Antibiotic prophylaxis
     Dosage: 1.5 GRAM
     Route: 042
  10. METRONIDAZOLE [Concomitant]
     Active Substance: METRONIDAZOLE
     Indication: Antibiotic prophylaxis
     Dosage: 500 MILLIGRAM
     Route: 042
  11. METRONIDAZOLE [Concomitant]
     Active Substance: METRONIDAZOLE
     Dosage: 500 MILLIGRAM
     Route: 065

REACTIONS (3)
  - Dyskinesia [Recovered/Resolved]
  - Dystonia [Recovered/Resolved]
  - Myoclonus [Recovered/Resolved]
